FAERS Safety Report 9915505 (Version 2)
Quarter: 2014Q1

REPORT INFORMATION
  Report Type: Report from Study
  Country: DE (occurrence: DE)
  Receive Date: 20140221
  Receipt Date: 20140221
  Transmission Date: 20141002
  Serious: Yes (Hospitalization)
  Sender: FDA-Public Use
  Company Number: DE-BRISTOL-MYERS SQUIBB COMPANY-20130704

PATIENT
  Age: 45 Year
  Sex: Female

DRUGS (3)
  1. ABATACEPT [Suspect]
     Dates: start: 201105
  2. TOCILIZUMAB [Suspect]
     Dosage: MAY11
     Dates: start: 201008
  3. ARCOXIA [Suspect]

REACTIONS (1)
  - Weight decreased [Not Recovered/Not Resolved]
